APPROVED DRUG PRODUCT: TICAGRELOR
Active Ingredient: TICAGRELOR
Strength: 90MG
Dosage Form/Route: TABLET;ORAL
Application: A216187 | Product #002 | TE Code: AB
Applicant: CHANGZHOU PHARMACEUTICAL FACTORY
Approved: Oct 28, 2025 | RLD: No | RS: No | Type: RX